FAERS Safety Report 24011015 (Version 1)
Quarter: 2024Q2

REPORT INFORMATION
  Report Type: Spontaneous
  Country: US (occurrence: None)
  Receive Date: 20240624
  Receipt Date: 20240624
  Transmission Date: 20240716
  Serious: Yes (Other)
  Sender: FDA-Public Use
  Company Number: None

PATIENT
  Age: 40 Year
  Sex: Male
  Weight: 80 kg

DRUGS (1)
  1. MAVYRET [Suspect]
     Active Substance: GLECAPREVIR\PIBRENTASVIR
     Dosage: OTHER STRENGTH : 100MH-40MG;?FREQUENCY : DAILY;?
     Route: 048

REACTIONS (2)
  - Mood altered [None]
  - Condition aggravated [None]

NARRATIVE: CASE EVENT DATE: 20240615
